FAERS Safety Report 10005845 (Version 1)
Quarter: 2014Q1

REPORT INFORMATION
  Report Type: Spontaneous
  Country: DE (occurrence: DE)
  Receive Date: 20140313
  Receipt Date: 20140313
  Transmission Date: 20141002
  Serious: Yes (Hospitalization)
  Sender: FDA-Public Use
  Company Number: DE-AMGEN-DEUSP2014016657

PATIENT
  Age: 51 Year
  Sex: 0

DRUGS (1)
  1. PROLIA [Suspect]
     Indication: OSTEOPOROSIS
     Route: 058

REACTIONS (3)
  - Retinal vein occlusion [Recovering/Resolving]
  - Visual impairment [Recovering/Resolving]
  - Macular oedema [Recovering/Resolving]
